FAERS Safety Report 17808024 (Version 1)
Quarter: 2020Q2

REPORT INFORMATION
  Report Type: Report from Study
  Country: US (occurrence: US)
  Receive Date: 20200520
  Receipt Date: 20200520
  Transmission Date: 20200714
  Serious: Yes (Other)
  Sender: FDA-Public Use
  Company Number: US-SHIRE-US202015973

PATIENT
  Age: 50 Year
  Sex: Female
  Weight: 102.95 kg

DRUGS (1)
  1. HUMAN NORMAL IMMUNOGLOBULIN; LIQUID 20 [Suspect]
     Active Substance: HUMAN IMMUNOGLOBULIN G
     Indication: IMMUNODEFICIENCY COMMON VARIABLE
     Dosage: 8 GRAM, 1X/WEEK
     Route: 065
     Dates: start: 20200502

REACTIONS (10)
  - Hyperhidrosis [Unknown]
  - Nausea [Not Recovered/Not Resolved]
  - Loss of consciousness [Recovering/Resolving]
  - Abdominal discomfort [Unknown]
  - Malaise [Unknown]
  - Feeling hot [Recovering/Resolving]
  - Vomiting [Unknown]
  - Pallor [Unknown]
  - Seizure [Recovering/Resolving]
  - Dizziness [Not Recovered/Not Resolved]

NARRATIVE: CASE EVENT DATE: 20200509
